FAERS Safety Report 6845734-4 (Version None)
Quarter: 2010Q3

REPORT INFORMATION
  Report Type: 
  Country: None (occurrence: None)
  Receive Date: 20100715
  Receipt Date: 20070827
  Transmission Date: 20110219
  Serious: No
  Sender: FDA-Public Use
  Company Number: US-PFIZER INC-2007071523

PATIENT
  Sex: Female
  Weight: 90.5 kg

DRUGS (15)
  1. CHANTIX [Suspect]
     Indication: SMOKING CESSATION THERAPY
     Dates: start: 20070823
  2. CALTRATE [Concomitant]
  3. IMDUR [Concomitant]
  4. ISOSORBIDE [Concomitant]
  5. COZAAR [Concomitant]
  6. TOPROL-XL [Concomitant]
  7. MONTELUKAST SODIUM [Concomitant]
  8. EFFEXOR [Concomitant]
  9. ATIVAN [Concomitant]
  10. ALL OTHER THERAPEUTIC PRODUCTS [Concomitant]
  11. GLUCOPHAGE [Concomitant]
  12. CENTRUM [Concomitant]
  13. FOSAMAX [Concomitant]
  14. ACTOS [Concomitant]
  15. XOPENEX [Concomitant]

REACTIONS (2)
  - FATIGUE [None]
  - NAUSEA [None]
